FAERS Safety Report 18689753 (Version 1)
Quarter: 2020Q4

REPORT INFORMATION
  Report Type: Spontaneous
  Country: US (occurrence: US)
  Receive Date: 20201231
  Receipt Date: 20201231
  Transmission Date: 20210114
  Serious: Yes (Death)
  Sender: FDA-Public Use
  Company Number: US-ROCHE-2696843

PATIENT
  Age: 78 Year
  Sex: Male

DRUGS (2)
  1. XELODA [Suspect]
     Active Substance: CAPECITABINE
     Indication: PANCREATIC CARCINOMA
     Dosage: 4 TABLET
     Route: 048
     Dates: start: 2020
  2. XELODA [Suspect]
     Active Substance: CAPECITABINE
     Dosage: 4 TABLET
     Route: 048
     Dates: start: 20200526, end: 20201101

REACTIONS (3)
  - Off label use [Unknown]
  - Death [Fatal]
  - Intentional product use issue [Unknown]

NARRATIVE: CASE EVENT DATE: 20201215
